FAERS Safety Report 11073409 (Version 1)
Quarter: 2015Q2

REPORT INFORMATION
  Report Type: Spontaneous
  Country: IT (occurrence: IT)
  Receive Date: 20150428
  Receipt Date: 20150428
  Transmission Date: 20150821
  Serious: Yes (Other)
  Sender: FDA-Public Use
  Company Number: IT-MYLANLABS-2015M1014312

PATIENT

DRUGS (3)
  1. CLOZAPINE. [Suspect]
     Active Substance: CLOZAPINE
     Dosage: 500 MG/D
     Route: 065
  2. FLUOXETINE [Concomitant]
     Active Substance: FLUOXETINE\FLUOXETINE HYDROCHLORIDE
     Indication: MAJOR DEPRESSION
     Dosage: 20 MG/DAY
     Route: 065
  3. BUPROPION [Interacting]
     Active Substance: BUPROPION
     Dosage: 150 MG/D FOR A MONTH
     Route: 065

REACTIONS (10)
  - Increased appetite [Recovering/Resolving]
  - Sedation [Recovering/Resolving]
  - Constipation [Recovering/Resolving]
  - Drug interaction [Recovered/Resolved]
  - Hypotension [Recovering/Resolving]
  - Hallucination, visual [Recovered/Resolved]
  - Drooling [Not Recovered/Not Resolved]
  - Seizure [Recovered/Resolved]
  - Tachycardia [Recovering/Resolving]
  - Vision blurred [Recovering/Resolving]
